FAERS Safety Report 25177470 (Version 1)
Quarter: 2025Q2

REPORT INFORMATION
  Report Type: Spontaneous
  Country: HR (occurrence: HR)
  Receive Date: 20250409
  Receipt Date: 20250409
  Transmission Date: 20250717
  Serious: Yes (Other)
  Sender: CHEPLAPHARM
  Company Number: None

PATIENT
  Sex: Female

DRUGS (1)
  1. QUETIAPINE [Suspect]
     Active Substance: QUETIAPINE
     Dosage: DAILY DOSE: 350 MILLIGRAM
     Route: 048
     Dates: start: 20250214, end: 20250214

REACTIONS (3)
  - Suicide attempt [Unknown]
  - Sluggishness [Unknown]
  - Somnolence [Unknown]

NARRATIVE: CASE EVENT DATE: 20250214
